FAERS Safety Report 9549320 (Version 1)
Quarter: 2013Q3

REPORT INFORMATION
  Report Type: Spontaneous
  Country: US (occurrence: US)
  Receive Date: 20130924
  Receipt Date: 20130924
  Transmission Date: 20140515
  Serious: No
  Sender: FDA-Public Use
  Company Number: US-BAYER-2013-115372

PATIENT
  Sex: Female

DRUGS (1)
  1. CLIMARA [Suspect]
     Indication: HOT FLUSH
     Dosage: 0.1 MG, UNK
     Route: 061
     Dates: start: 1997

REACTIONS (4)
  - Application site erythema [None]
  - Application site pruritus [None]
  - Application site pain [None]
  - Livedo reticularis [None]
